FAERS Safety Report 15123866 (Version 1)
Quarter: 2018Q3

REPORT INFORMATION
  Report Type: Spontaneous
  Country: US (occurrence: US)
  Receive Date: 20180710
  Receipt Date: 20180710
  Transmission Date: 20181010
  Serious: No
  Sender: FDA-Public Use
  Company Number: US-APOTEX-2018AP015577

PATIENT
  Sex: Male

DRUGS (1)
  1. FLUTICASONE PROPIONATE NASAL SPRAY USP [Suspect]
     Active Substance: FLUTICASONE PROPIONATE
     Indication: SEASONAL ALLERGY
     Dosage: UNK
     Route: 045

REACTIONS (4)
  - Condition aggravated [Unknown]
  - Seasonal allergy [Unknown]
  - Hypersensitivity [Unknown]
  - Drug ineffective [Unknown]
